FAERS Safety Report 11850349 (Version 1)
Quarter: 2015Q4

REPORT INFORMATION
  Report Type: Spontaneous
  Country: US (occurrence: US)
  Receive Date: 20151218
  Receipt Date: 20151218
  Transmission Date: 20160305
  Serious: No
  Sender: FDA-Public Use
  Company Number: US-JNJFOC-20151121516

PATIENT
  Age: 84 Year
  Sex: Female
  Weight: 117.94 kg

DRUGS (11)
  1. VITAMIN D [Concomitant]
     Active Substance: CHOLECALCIFEROL
     Indication: NUTRITIONAL SUPPLEMENTATION
     Route: 065
  2. VITAMIN B NOS [Concomitant]
     Active Substance: VITAMIN B
     Indication: NUTRITIONAL SUPPLEMENTATION
     Route: 065
  3. DIURETICS [Concomitant]
     Active Substance: UNSPECIFIED INGREDIENT
     Indication: OEDEMA
     Dosage: 1 EVERY OTHER DAY
     Route: 065
  4. FLUCONAZOLE. [Concomitant]
     Active Substance: FLUCONAZOLE
     Indication: RASH
     Route: 065
     Dates: start: 20151119
  5. ANTIHYPERTENSIVES [Concomitant]
     Active Substance: UNSPECIFIED INGREDIENT
     Indication: HYPERTENSION
     Route: 065
  6. BABY ASPIRIN [Concomitant]
     Active Substance: ASPIRIN
     Indication: ROUTINE HEALTH MAINTENANCE
     Route: 065
  7. VITAMIN B12 [Concomitant]
     Active Substance: CYANOCOBALAMIN
     Indication: NUTRITIONAL SUPPLEMENTATION
     Route: 065
  8. CALADRYL CLEAR [Concomitant]
     Active Substance: PRAMOXINE HYDROCHLORIDE\ZINC ACETATE
     Indication: RASH
     Dosage: QUATER SIZE, 9 DAYS
     Route: 065
     Dates: start: 20151110
  9. CHOLESTEROL [Concomitant]
     Active Substance: CHOLESTEROL
     Indication: BLOOD CHOLESTEROL
     Route: 065
  10. VITAMIN B2 [Concomitant]
     Active Substance: RIBOFLAVIN
     Indication: NUTRITIONAL SUPPLEMENTATION
     Route: 065
  11. TYLENOL REGULAR STRENGTH [Suspect]
     Active Substance: ACETAMINOPHEN
     Indication: ARTHRALGIA
     Route: 048
     Dates: end: 20151120

REACTIONS (2)
  - Rash pruritic [Not Recovered/Not Resolved]
  - Inappropriate schedule of drug administration [Not Recovered/Not Resolved]
